FAERS Safety Report 4497944-1 (Version None)
Quarter: 2004Q4

REPORT INFORMATION
  Report Type: 
  Country: None (occurrence: None)
  Receive Date: 20041105
  Receipt Date: 20041025
  Transmission Date: 20050328
  Serious: Yes (Congenital Anomaly)
  Sender: FDA-Public Use
  Company Number: 200411381BCC

PATIENT
  Age: 24 Year
  Sex: Female
  Weight: 89.3586 kg

DRUGS (4)
  1. ALEVE [Suspect]
     Indication: HEADACHE
     Dosage: 440 MG , ONCE, ORAL
     Route: 048
     Dates: start: 20041001
  2. ALEVE [Suspect]
     Indication: PAIN
     Dosage: 440 MG , ONCE, ORAL
     Route: 048
     Dates: start: 20041001
  3. LIFE FINEST [Concomitant]
  4. PRENATAL VITAMINS [Concomitant]

REACTIONS (2)
  - CYSTIC LYMPHANGIOMA [None]
  - DRUG EXPOSURE DURING PREGNANCY [None]
